FAERS Safety Report 5010025-3 (Version None)
Quarter: 2006Q2

REPORT INFORMATION
  Report Type: 
  Country: None (occurrence: None)
  Receive Date: 20060404
  Receipt Date: 20051111
  Transmission Date: 20061013
  Serious: No
  Sender: FDA-Public Use
  Company Number: US200511000504

PATIENT
  Age: 64 Year
  Sex: Female
  Weight: 63.5 kg

DRUGS (9)
  1. CYMBALTA [Suspect]
     Indication: SUICIDAL IDEATION
     Dosage: 30 MG, DAILY (1/D)
     Dates: start: 20040928
  2. LIPITOR [Concomitant]
  3. VERAPAMIL [Concomitant]
  4. HYDROCHLOROTHIAZIDE [Concomitant]
  5. OMEPRAZOLE [Concomitant]
  6. ESTROPIPATE [Concomitant]
  7. LORAZEPAM [Concomitant]
  8. MIRALAX [Concomitant]
  9. ACETAMINOPHEN [Concomitant]

REACTIONS (10)
  - DECREASED APPETITE [None]
  - DEPRESSION [None]
  - DIZZINESS [None]
  - DRY MOUTH [None]
  - FATIGUE [None]
  - FOOD CRAVING [None]
  - INSOMNIA [None]
  - NAUSEA [None]
  - SOMNOLENCE [None]
  - WEIGHT INCREASED [None]
